FAERS Safety Report 8277784-8 (Version None)
Quarter: 2012Q2

REPORT INFORMATION
  Report Type: 
  Country: None (occurrence: None)
  Receive Date: 20120412
  Receipt Date: 20120402
  Transmission Date: 20120825
  Serious: Yes (Hospitalization)
  Sender: FDA-Public Use
  Company Number: US-ELI_LILLY_AND_COMPANY-US201204001076

PATIENT
  Age: 27 Year
  Sex: Male

DRUGS (3)
  1. SEROQUEL [Concomitant]
     Dosage: 50 MG, EACH EVENING
     Route: 048
  2. SEROQUEL [Concomitant]
     Dosage: 800 MG, EACH EVENING
     Route: 048
  3. OLANZAPINE [Suspect]
     Dosage: 10 MG, TID
     Route: 048

REACTIONS (3)
  - DRUG INTERACTION [None]
  - METABOLIC SYNDROME [None]
  - OVERDOSE [None]
